FAERS Safety Report 5444488-6 (Version None)
Quarter: 2007Q3

REPORT INFORMATION
  Report Type: 
  Country: None (occurrence: None)
  Receive Date: 20070830
  Receipt Date: 20070816
  Transmission Date: 20080115
  Serious: Yes (Other)
  Sender: FDA-Public Use
  Company Number: CHPA2007US08934

PATIENT
  Age: 64 Year
  Sex: Female

DRUGS (1)
  1. BENEFIBER CHEWABLE TABLET (NCH)(GUAR GUM) CHEWABLE TABLET [Suspect]
     Indication: BOWEL MOVEMENT IRREGULARITY
     Dosage: ORAL

REACTIONS (1)
  - LIVER DISORDER [None]
